FAERS Safety Report 10017661 (Version 1)
Quarter: 2014Q1

REPORT INFORMATION
  Report Type: Spontaneous
  Country: US (occurrence: None)
  Receive Date: 20140313
  Receipt Date: 20140313
  Transmission Date: 20141002
  Serious: Yes (Disabling)
  Sender: FDA-Public Use
  Company Number: None

PATIENT
  Age: 82 Year
  Sex: Female
  Weight: 52.62 kg

DRUGS (8)
  1. AMIODARONE [Suspect]
     Indication: ATRIAL FIBRILLATION
     Dosage: 400 MG.?1 PILL A.M.?P.M?TWICE DAILY BY MOUTH?
     Route: 048
     Dates: start: 20140121, end: 20140204
  2. CARVEDILOL [Concomitant]
  3. DILTIAZEM [Concomitant]
  4. DIGOXIN [Concomitant]
  5. VITAMIN B [Concomitant]
  6. VITAMIN C [Concomitant]
  7. VITAMIN D [Concomitant]
  8. CO Q-10 [Concomitant]

REACTIONS (9)
  - Vomiting [None]
  - Back pain [None]
  - Dizziness [None]
  - Asthenia [None]
  - Muscular weakness [None]
  - Asthenia [None]
  - Gait disturbance [None]
  - Dyspnoea [None]
  - Visual impairment [None]
